FAERS Safety Report 23331291 (Version 1)
Quarter: 2023Q4

REPORT INFORMATION
  Report Type: Report from Study
  Country: IN (occurrence: None)
  Receive Date: 20231222
  Receipt Date: 20231222
  Transmission Date: 20240110
  Serious: Yes (Other)
  Sender: FDA-Public Use
  Company Number: 2023A291198

PATIENT
  Age: 41 Year
  Sex: Female

DRUGS (1)
  1. LYNPARZA [Suspect]
     Active Substance: OLAPARIB
     Indication: Breast cancer female
     Dosage: 150.0MG UNKNOWN
     Route: 048

REACTIONS (8)
  - Blood pressure decreased [Recovering/Resolving]
  - Malaise [Unknown]
  - General physical health deterioration [Unknown]
  - Pyrexia [Unknown]
  - Tooth infection [Unknown]
  - Asthenia [Recovering/Resolving]
  - Haemoglobin decreased [Recovering/Resolving]
  - Dyspnoea [Recovering/Resolving]
